FAERS Safety Report 9109740 (Version 2)
Quarter: 2013Q2

REPORT INFORMATION
  Report Type: Spontaneous
  Country: AU (occurrence: AU)
  Receive Date: 20130222
  Receipt Date: 20130422
  Transmission Date: 20140414
  Serious: No
  Sender: FDA-Public Use
  Company Number: AU-NOVOPROD-370831

PATIENT
  Age: 65 Year
  Sex: Male
  Weight: 170 kg

DRUGS (6)
  1. LEVEMIR [Suspect]
     Indication: TYPE 1 DIABETES MELLITUS
     Dosage: 9 U, QD
     Route: 065
     Dates: start: 2006, end: 20130322
  2. NOVORAPID [Suspect]
     Indication: TYPE 1 DIABETES MELLITUS
     Dosage: APPROX 16-17 UNITS/3 TIMES A DAY
     Route: 065
  3. METHOTREXATE [Concomitant]
     Dosage: 20 MG, QW
     Dates: start: 201209, end: 20130321
  4. ADALAT [Concomitant]
     Dosage: 20 MG, QD
     Dates: end: 201209
  5. PRAZOSIN [Concomitant]
     Dosage: 3 MG, QD
     Dates: start: 201209
  6. LANTUS [Concomitant]
     Indication: TYPE 1 DIABETES MELLITUS
     Dosage: UNK

REACTIONS (1)
  - Psoriasis [Not Recovered/Not Resolved]
